FAERS Safety Report 5460705-0 (Version None)
Quarter: 2007Q3

REPORT INFORMATION
  Report Type: 
  Country: None (occurrence: None)
  Receive Date: 20070918
  Receipt Date: 20070903
  Transmission Date: 20080115
  Serious: Yes (Hospitalization)
  Sender: FDA-Public Use
  Company Number: B0486906A

PATIENT
  Age: 59 Year
  Sex: Male

DRUGS (3)
  1. AMOXICILLIN TRIHYDRATE [Suspect]
     Indication: NASOPHARYNGITIS
     Dosage: 750 / THREE TIMES PER DAY / UNKNOWN
  2. PARACETAMOL [Concomitant]
  3. HERBAL MEDICATION [Concomitant]

REACTIONS (2)
  - EOSINOPHILIC PNEUMONIA [None]
  - GENERALISED ERYTHEMA [None]
